FAERS Safety Report 25036400 (Version 1)
Quarter: 2025Q1

REPORT INFORMATION
  Report Type: Spontaneous
  Country: ES (occurrence: ES)
  Receive Date: 20250304
  Receipt Date: 20250304
  Transmission Date: 20250409
  Serious: Yes (Life-Threatening, Other)
  Sender: RANBAXY
  Company Number: ES-SUN PHARMACEUTICAL INDUSTRIES LTD-2025R1-496480

PATIENT
  Age: 2 Year

DRUGS (6)
  1. DOXORUBICIN [Suspect]
     Active Substance: DOXORUBICIN
     Indication: Retinoblastoma
     Route: 065
  2. IFOSFAMIDE [Suspect]
     Active Substance: IFOSFAMIDE
     Indication: Retinoblastoma
     Route: 065
  3. ETOPOSIDE [Suspect]
     Active Substance: ETOPOSIDE
     Indication: Retinoblastoma
     Route: 065
  4. THIOTEPA [Suspect]
     Active Substance: THIOTEPA
     Indication: Retinoblastoma
     Route: 065
  5. NAXITAMAB [Suspect]
     Active Substance: NAXITAMAB
     Indication: Retinoblastoma
     Dosage: 3 MILLIGRAM/KILOGRAM, QD
     Route: 042
  6. SARGRAMOSTIM [Concomitant]
     Active Substance: SARGRAMOSTIM
     Indication: Retinoblastoma
     Route: 065

REACTIONS (6)
  - Blindness [Unknown]
  - Deafness [Unknown]
  - Nephropathy [Unknown]
  - Pain [Unknown]
  - Urticaria [Unknown]
  - Hypotension [Unknown]
